FAERS Safety Report 6078679-0 (Version None)
Quarter: 2009Q1

REPORT INFORMATION
  Report Type: 
  Country: None (occurrence: None)
  Receive Date: 20090216
  Receipt Date: 20090204
  Transmission Date: 20090719
  Serious: Yes (Other)
  Sender: FDA-Public Use
  Company Number: PHEH2004US03404

PATIENT

DRUGS (31)
  1. AREDIA [Suspect]
     Indication: HYPOGONADISM
     Dosage: 30 MG QMOS
     Dates: start: 20020801, end: 20021201
  2. ZOMETA [Suspect]
     Indication: PROPHYLAXIS
     Dosage: 4 MG EVERY MONTH
     Route: 042
     Dates: start: 20030201
  3. FOSAMAX [Suspect]
     Indication: OSTEOPENIA
     Dosage: 70 MG ONE TIME PER WEEK
     Dates: start: 20011115, end: 20021201
  4. LUPRON [Concomitant]
     Dosage: 22.5 MG QUARTERLY
     Route: 030
     Dates: start: 20020507
  5. LUPRON [Concomitant]
     Dosage: 7.5 MG, UNK
     Dates: start: 20020101
  6. HYDROCORTISONE [Concomitant]
     Indication: PROPHYLAXIS
     Dosage: 20 MG, BID
     Route: 048
     Dates: start: 20030729
  7. CELEBREX [Concomitant]
     Dosage: 200 MG, BID
     Route: 048
     Dates: start: 20010101
  8. TAMOXIFEN CITRATE [Concomitant]
     Indication: GYNAECOMASTIA
     Dosage: 10 MG, BID
  9. TRAZODONE HCL [Concomitant]
     Dosage: 100 MG, QD
     Route: 048
     Dates: start: 20040130
  10. TRAZODONE HCL [Concomitant]
     Dosage: 50MG/DAY
     Dates: start: 20020714
  11. NIZORAL [Concomitant]
  12. AVODART [Concomitant]
     Dosage: .5 MG, QD
     Route: 048
     Dates: start: 20030224
  13. PRIMAXIN [Concomitant]
     Dosage: UNK
     Dates: start: 20020101
  14. VANCOMYCIN HCL [Concomitant]
     Dosage: UNK
     Dates: start: 20020101
  15. VANCOMYCIN HCL [Concomitant]
     Dosage: UNK
     Route: 042
     Dates: start: 20041217
  16. CASODEX [Concomitant]
     Dosage: UNK
     Dates: start: 20020101
  17. PROSCAR [Concomitant]
     Dosage: 5 MG, QD
     Route: 048
  18. FLOMAX [Concomitant]
     Dosage: 0.4 MG, PRN
  19. AMBIEN [Concomitant]
     Dosage: UNK
     Dates: start: 19950617
  20. HALCION [Concomitant]
  21. METROGEL [Concomitant]
  22. VITAMINS NOS [Concomitant]
  23. ANUSOL                             /01604901/ [Concomitant]
     Dosage: UNK
     Route: 054
     Dates: start: 20021024
  24. GLUCOSAMINE [Concomitant]
     Dosage: 750MG/DAY
     Dates: start: 19980101
  25. KEFLEX [Concomitant]
  26. METAMUCIL [Concomitant]
  27. ACIPHEX [Concomitant]
  28. CALCITRIOL [Concomitant]
     Dosage: 0.5MCG
     Dates: start: 20040101
  29. MELATONIN [Concomitant]
     Dosage: 4.5MG/DAY
     Dates: start: 20000101
  30. SIMVASTATIN [Concomitant]
     Dosage: 10MG/DAY
     Dates: start: 20040101
  31. VALERIAN [Concomitant]
     Dosage: 800MG/DAY

REACTIONS (50)
  - ABSCESS DRAINAGE [None]
  - ABSCESS JAW [None]
  - AMNESIA [None]
  - ANAEMIA OF CHRONIC DISEASE [None]
  - ANHEDONIA [None]
  - ANXIETY [None]
  - BIOPSY BONE [None]
  - BONE DEBRIDEMENT [None]
  - BONE SWELLING [None]
  - DENTAL FISTULA [None]
  - DISABILITY [None]
  - DYSPHAGIA [None]
  - ERECTILE DYSFUNCTION [None]
  - FACE OEDEMA [None]
  - FATIGUE [None]
  - FISTULA DISCHARGE [None]
  - GINGIVAL ERYTHEMA [None]
  - GINGIVAL OEDEMA [None]
  - GINGIVAL SWELLING [None]
  - HEADACHE [None]
  - HOT FLUSH [None]
  - HYPERCHOLESTEROLAEMIA [None]
  - IMPAIRED HEALING [None]
  - IMPETIGO [None]
  - INJURY [None]
  - INSOMNIA [None]
  - LIBIDO DECREASED [None]
  - LYMPHADENOPATHY [None]
  - MALAISE [None]
  - NEURALGIA [None]
  - OESOPHAGEAL DILATION PROCEDURE [None]
  - OSTEOMYELITIS [None]
  - OSTEONECROSIS [None]
  - OSTEOPENIA [None]
  - PAIN [None]
  - PAIN IN JAW [None]
  - PELVIC PAIN [None]
  - PERINEAL PAIN [None]
  - POOR QUALITY SLEEP [None]
  - PROSTATE TENDERNESS [None]
  - RASH [None]
  - RHINITIS [None]
  - SEQUESTRECTOMY [None]
  - SKIN LESION [None]
  - THERAPEUTIC PROCEDURE [None]
  - TOOTH EXTRACTION [None]
  - TOOTH INFECTION [None]
  - TOOTHACHE [None]
  - WOUND CLOSURE [None]
  - WOUND DEHISCENCE [None]
